FAERS Safety Report 16989887 (Version 1)
Quarter: 2019Q4

REPORT INFORMATION
  Report Type: Spontaneous
  Country: US (occurrence: US)
  Receive Date: 20190920
  Receipt Date: 20190920
  Transmission Date: 20200122
  Serious: Yes (Hospitalization)
  Sender: FDA-Public Use
  Company Number: None

PATIENT
  Sex: Male

DRUGS (9)
  1. SUCRAFATE [Concomitant]
     Active Substance: SUCRALFATE
  2. ESCIALOPRAM [Concomitant]
  3. OXYCODONE [Concomitant]
     Active Substance: OXYCODONE
  4. CARBOPLATIN. [Concomitant]
     Active Substance: CARBOPLATIN
  5. FAMOTIDINE. [Concomitant]
     Active Substance: FAMOTIDINE
  6. PANTOPRAZOLE [Concomitant]
     Active Substance: PANTOPRAZOLE
  7. GRANISETRON [Suspect]
     Active Substance: GRANISETRON
     Indication: GASTRIC CANCER
     Route: 042
     Dates: start: 20190802
  8. ESOMEPRA [Concomitant]
     Active Substance: ESOMEPRAZOLE
  9. PACITAXEL [Concomitant]
     Active Substance: PACLITAXEL

REACTIONS (1)
  - Complication associated with device [None]
